FAERS Safety Report 6661168-X (Version None)
Quarter: 2010Q1

REPORT INFORMATION
  Report Type: 
  Country: None (occurrence: None)
  Receive Date: 20100331
  Receipt Date: 20100329
  Transmission Date: 20100710
  Serious: Yes (Hospitalization)
  Sender: FDA-Public Use
  Company Number: A0852700A

PATIENT
  Age: 58 Year
  Sex: Female

DRUGS (1)
  1. AVANDIA [Suspect]
     Indication: DIABETES MELLITUS
     Dosage: 8MG PER DAY
     Route: 048
     Dates: end: 20030401

REACTIONS (7)
  - ASTHENIA [None]
  - BACK PAIN [None]
  - CORONARY ARTERY BYPASS [None]
  - DYSSTASIA [None]
  - FATIGUE [None]
  - RESPIRATORY DISORDER [None]
  - WALKING AID USER [None]
